FAERS Safety Report 7821774-3 (Version None)
Quarter: 2011Q4

REPORT INFORMATION
  Report Type: 
  Country: None (occurrence: None)
  Receive Date: 20111018
  Receipt Date: 20110104
  Transmission Date: 20120403
  Serious: No
  Sender: FDA-Public Use
  Company Number: US-ASTRAZENECA-2011SE00432

PATIENT
  Sex: Female

DRUGS (4)
  1. SPIRIVA [Concomitant]
  2. SYMBICORT [Suspect]
     Indication: CHRONIC OBSTRUCTIVE PULMONARY DISEASE
     Dosage: 160 MCG DAILY
     Route: 055
  3. NEXIUM [Concomitant]
  4. SYNTHROID [Concomitant]

REACTIONS (4)
  - NERVOUSNESS [None]
  - RESPIRATORY TRACT INFECTION [None]
  - CATARACT [None]
  - WEIGHT INCREASED [None]
